FAERS Safety Report 23953607 (Version 2)
Quarter: 2024Q4

REPORT INFORMATION
  Report Type: Report from Study
  Country: IN (occurrence: IN)
  Receive Date: 20240608
  Receipt Date: 20241029
  Transmission Date: 20250115
  Serious: Yes (Other)
  Sender: ROCHE
  Company Number: IN-ROCHE-3438301

PATIENT
  Age: 34 Year
  Sex: Female

DRUGS (1)
  1. KADCYLA [Suspect]
     Active Substance: ADO-TRASTUZUMAB EMTANSINE
     Indication: Breast cancer metastatic
     Dosage: YES
     Route: 042
     Dates: start: 20230427

REACTIONS (3)
  - Off label use [Unknown]
  - Metastases to spine [Unknown]
  - Fatigue [Unknown]
